FAERS Safety Report 8389043-3 (Version None)
Quarter: 2012Q2

REPORT INFORMATION
  Report Type: 
  Country: None (occurrence: None)
  Receive Date: 20120528
  Receipt Date: 20120522
  Transmission Date: 20120825
  Serious: Yes (Death, Other)
  Sender: FDA-Public Use
  Company Number: US-AMGEN-USASP2012023595

PATIENT
  Sex: Male
  Weight: 77.098 kg

DRUGS (5)
  1. CARBOPLATIN [Concomitant]
     Dosage: 150 MG, UNK
     Route: 042
     Dates: start: 20110801, end: 20110822
  2. NAVELBINE [Concomitant]
     Dosage: 48 MG, UNK
     Route: 042
     Dates: start: 20110801, end: 20110822
  3. CETUXIMAB [Concomitant]
     Dosage: 480 MG, UNK
     Dates: start: 20110801
  4. NEUPOGEN [Suspect]
     Indication: PRODUCT USED FOR UNKNOWN INDICATION
     Dosage: 480 MUG, UNK
     Route: 058
     Dates: start: 20111017, end: 20111222
  5. TAXOL [Concomitant]
     Dosage: 75 MG, QWK
     Route: 042
     Dates: start: 20110822

REACTIONS (2)
  - DEATH [None]
  - PNEUMONIA [None]
